FAERS Safety Report 25716154 (Version 1)
Quarter: 2025Q3

REPORT INFORMATION
  Report Type: Report from Study
  Country: ZA (occurrence: ZA)
  Receive Date: 20250822
  Receipt Date: 20250822
  Transmission Date: 20251021
  Serious: Yes (Hospitalization)
  Sender: ELI LILLY AND COMPANY
  Company Number: ZA-ELI_LILLY_AND_COMPANY-ZA202508015653

PATIENT
  Age: 58 Year
  Sex: Female

DRUGS (1)
  1. IXEKIZUMAB [Suspect]
     Active Substance: IXEKIZUMAB
     Indication: Ankylosing spondylitis
     Route: 058
     Dates: start: 20240417, end: 202506

REACTIONS (1)
  - Migraine [Unknown]
